FAERS Safety Report 10256526 (Version 1)
Quarter: 2014Q2

REPORT INFORMATION
  Report Type: Spontaneous
  Country: US (occurrence: US)
  Receive Date: 20140624
  Receipt Date: 20140624
  Transmission Date: 20141212
  Serious: No
  Sender: FDA-Public Use
  Company Number: US-ZOGENIX, INC.-2012ZX000249

PATIENT
  Age: 47 Year
  Sex: Male
  Weight: 79.45 kg

DRUGS (2)
  1. SUMAVEL DOSEPRO [Suspect]
     Indication: MIGRAINE
     Dates: start: 20120712, end: 20120712
  2. CRESTOR [Concomitant]
     Indication: BLOOD CHOLESTEROL INCREASED
     Route: 048

REACTIONS (2)
  - Injection site urticaria [Recovered/Resolved]
  - Expired product administered [Recovered/Resolved]
